FAERS Safety Report 8561429-3 (Version None)
Quarter: 2012Q3

REPORT INFORMATION
  Report Type: 
  Country: None (occurrence: None)
  Receive Date: 20120802
  Receipt Date: 20120726
  Transmission Date: 20120928
  Serious: Yes (Hospitalization, Other)
  Sender: FDA-Public Use
  Company Number: MX-GLAXOSMITHKLINE-B0700483B

PATIENT
  Sex: Female
  Weight: 57 kg

DRUGS (3)
  1. POTIGA [Suspect]
     Indication: PARTIAL SEIZURES
     Dosage: 1050MG THREE TIMES PER DAY
     Route: 048
     Dates: start: 20070320
  2. CLONAZEPAM [Concomitant]
     Indication: EPILEPSY
     Dosage: 2MG PER DAY
  3. CARBAMAZEPINE [Concomitant]
     Indication: EPILEPSY
     Dosage: 500MG PER DAY
     Dates: start: 20101110

REACTIONS (1)
  - SOMATISATION DISORDER [None]
